FAERS Safety Report 24044912 (Version 1)
Quarter: 2024Q3

REPORT INFORMATION
  Report Type: Spontaneous
  Country: CH (occurrence: CH)
  Receive Date: 20240703
  Receipt Date: 20240703
  Transmission Date: 20241017
  Serious: Yes (Hospitalization)
  Sender: MACLEODS
  Company Number: CH-MLMSERVICE-20240614-PI101176-00057-1

PATIENT
  Age: 48 Year
  Sex: Male

DRUGS (1)
  1. ATORVASTATIN [Suspect]
     Active Substance: ATORVASTATIN
     Indication: Product used for unknown indication
     Dosage: LONG TERM
     Route: 065

REACTIONS (3)
  - Compartment syndrome [Recovering/Resolving]
  - Hypoaesthesia [Recovering/Resolving]
  - Rhabdomyolysis [Recovering/Resolving]
